FAERS Safety Report 7600974-1 (Version None)
Quarter: 2011Q3

REPORT INFORMATION
  Report Type: 
  Country: None (occurrence: None)
  Receive Date: 20110711
  Receipt Date: 20110615
  Transmission Date: 20111222
  Serious: Yes (Hospitalization)
  Sender: FDA-Public Use
  Company Number: US-GLAXOSMITHKLINE-A0787769A

PATIENT
  Age: 74 Year
  Sex: Female
  Weight: 88.2 kg

DRUGS (2)
  1. GLIPIZIDE [Concomitant]
  2. AVANDIA [Suspect]
     Indication: DIABETES MELLITUS
     Route: 048
     Dates: start: 20061019, end: 20070508

REACTIONS (1)
  - MYOCARDIAL INFARCTION [None]
